FAERS Safety Report 8111742-9 (Version None)
Quarter: 2012Q1

REPORT INFORMATION
  Report Type: 
  Country: None (occurrence: None)
  Receive Date: 20120203
  Receipt Date: 20120131
  Transmission Date: 20120608
  Serious: No
  Sender: FDA-Public Use
  Company Number: US-BAYER-2012-010755

PATIENT
  Age: 74 Year
  Sex: Female

DRUGS (4)
  1. ASTELIN [Concomitant]
  2. CELEXA [Concomitant]
  3. AVELOX [Suspect]
     Route: 048
  4. ADVAIR DISKUS 100/50 [Concomitant]

REACTIONS (1)
  - TREMOR [None]
